FAERS Safety Report 19582425 (Version 1)
Quarter: 2021Q3

REPORT INFORMATION
  Report Type: Report from Study
  Country: ZA (occurrence: ZA)
  Receive Date: 20210719
  Receipt Date: 20210719
  Transmission Date: 20211014
  Serious: Yes (Death)
  Sender: FDA-Public Use
  Company Number: ZA-ASTRAZENECA-2021A625318

PATIENT
  Sex: Male

DRUGS (2)
  1. SYMBICORD [Suspect]
     Active Substance: BUDESONIDE\FORMOTEROL
     Dosage: 160 UG/INHAL, UNKNOWN FREQUENCY UNKNOWN
     Route: 055
  2. AMLOC [Concomitant]

REACTIONS (1)
  - Death [Fatal]
